FAERS Safety Report 5292367-X (Version None)
Quarter: 2007Q2

REPORT INFORMATION
  Report Type: 
  Country: None (occurrence: None)
  Receive Date: 20070410
  Receipt Date: 20070402
  Transmission Date: 20071010
  Serious: Yes (Hospitalization)
  Sender: FDA-Public Use
  Company Number: CA-BOEHRINGER INGELHEIM GMBH, GERMANY-2007-CN-00270CN

PATIENT
  Sex: Female

DRUGS (7)
  1. MICARDIS [Suspect]
     Dates: start: 20060309
  2. TENORETIC 100 [Concomitant]
  3. NORVASC [Concomitant]
  4. ZANTAC [Concomitant]
  5. OCUVITE [Concomitant]
  6. ARTHROTEC [Concomitant]
  7. SENOKOT [Concomitant]

REACTIONS (3)
  - PAIN IN EXTREMITY [None]
  - RENAL FAILURE [None]
  - URINARY TRACT INFECTION [None]
